FAERS Safety Report 4537745-9 (Version None)
Quarter: 2004Q4

REPORT INFORMATION
  Report Type: 
  Country: None (occurrence: None)
  Receive Date: 20041224
  Receipt Date: 20030605
  Transmission Date: 20050328
  Serious: Yes (Hospitalization, Disabling)
  Sender: FDA-Public Use
  Company Number: US-MERCK-0306USA00848

PATIENT
  Age: 50 Year
  Sex: Female
  Weight: 82 kg

DRUGS (9)
  1. HYDROCHLOROTHIAZIDE [Concomitant]
     Route: 065
  2. NORVASC [Concomitant]
     Route: 065
  3. NAPROSYN [Concomitant]
     Route: 065
  4. NAPROSYN [Concomitant]
     Route: 065
  5. VIOXX [Suspect]
     Indication: NECK PAIN
     Route: 048
     Dates: start: 20000801, end: 20000101
  6. VIOXX [Suspect]
     Route: 048
     Dates: start: 20030509
  7. VIOXX [Suspect]
     Route: 048
     Dates: start: 20000907, end: 20001004
  8. VIOXX [Suspect]
     Route: 048
     Dates: start: 20000101, end: 20000906
  9. VIOXX [Suspect]
     Route: 048
     Dates: start: 20001005

REACTIONS (13)
  - ADVERSE EVENT [None]
  - AMENORRHOEA [None]
  - BREAST LUMP REMOVAL [None]
  - CAROTID ARTERY DISEASE [None]
  - CERVICAL SPASM [None]
  - FOOD POISONING [None]
  - HYPERTENSION [None]
  - NECK INJURY [None]
  - OEDEMA [None]
  - OSTEOARTHRITIS [None]
  - PAIN IN EXTREMITY [None]
  - PALPITATIONS [None]
  - TRANSIENT ISCHAEMIC ATTACK [None]
